FAERS Safety Report 21436839 (Version 4)
Quarter: 2023Q1

REPORT INFORMATION
  Report Type: Report from Study
  Country: CN (occurrence: CN)
  Receive Date: 20221010
  Receipt Date: 20230315
  Transmission Date: 20230418
  Serious: Yes (Hospitalization)
  Sender: FDA-Public Use
  Company Number: CN-BAYER-2022A124696

PATIENT
  Age: 60 Year
  Sex: Male
  Weight: 51 kg

DRUGS (6)
  1. REGORAFENIB [Suspect]
     Active Substance: REGORAFENIB
     Indication: Colorectal cancer metastatic
     Dosage: 80 MG, QD, DAY1 TO 7
     Route: 048
     Dates: start: 20220816, end: 20220822
  2. REGORAFENIB [Suspect]
     Active Substance: REGORAFENIB
     Indication: Colorectal cancer metastatic
     Dosage: 120 MG, QD, DAY 8 TO 14
     Route: 048
     Dates: start: 20220823, end: 20220829
  3. REGORAFENIB [Suspect]
     Active Substance: REGORAFENIB
     Indication: Colorectal cancer metastatic
     Dosage: 160 MG, QD, DAY 15 TO 21
     Route: 048
     Dates: start: 20220830, end: 20220905
  4. REGORAFENIB [Suspect]
     Active Substance: REGORAFENIB
     Indication: Colorectal cancer metastatic
     Dosage: 160 MG, QD
     Route: 048
     Dates: start: 20220906, end: 20221019
  5. MOSAPRIDE CITRATE [Concomitant]
     Active Substance: MOSAPRIDE CITRATE
     Dosage: 15 MG
     Dates: start: 202107, end: 20220831
  6. BISMUTH SUBCITRATE POTASSIUM [Concomitant]
     Active Substance: BISMUTH SUBCITRATE POTASSIUM
     Dosage: 1 G
     Dates: start: 202107, end: 20220831

REACTIONS (1)
  - Gastritis [Recovered/Resolved]

NARRATIVE: CASE EVENT DATE: 20220820
